FAERS Safety Report 9146502 (Version 1)
Quarter: 2013Q1

REPORT INFORMATION
  Report Type: Spontaneous
  Country: AU (occurrence: AU)
  Receive Date: 20130307
  Receipt Date: 20130307
  Transmission Date: 20140127
  Serious: Yes (Other)
  Sender: FDA-Public Use
  Company Number: AU-PFIZER INC-2013076807

PATIENT
  Sex: Male

DRUGS (2)
  1. LIPITOR [Suspect]
     Dosage: 40 MG, UNK
  2. LIPITOR [Suspect]
     Dosage: 20 MG, UNK

REACTIONS (3)
  - Peripheral arterial occlusive disease [Unknown]
  - Muscle spasms [Unknown]
  - Myalgia [Unknown]
